FAERS Safety Report 6582834-0 (Version None)
Quarter: 2010Q1

REPORT INFORMATION
  Report Type: 
  Country: None (occurrence: None)
  Receive Date: 20100216
  Receipt Date: 20100208
  Transmission Date: 20100710
  Serious: Yes (Other)
  Sender: FDA-Public Use
  Company Number: CA-JNJCH-2010003261

PATIENT
  Sex: Male
  Weight: 37.2 kg

DRUGS (1)
  1. BENADRYL [Suspect]
     Indication: PROPHYLAXIS
     Route: 042

REACTIONS (3)
  - FEELING HOT [None]
  - MALAISE [None]
  - PRESYNCOPE [None]
